FAERS Safety Report 8059961-4 (Version None)
Quarter: 2012Q1

REPORT INFORMATION
  Report Type: 
  Country: None (occurrence: None)
  Receive Date: 20120120
  Receipt Date: 20120116
  Transmission Date: 20120608
  Serious: Yes (Other)
  Sender: FDA-Public Use
  Company Number: US-ABBOTT-11P-163-0884119-00

PATIENT
  Sex: Male
  Weight: 81.72 kg

DRUGS (1)
  1. HUMIRA [Suspect]
     Indication: PSORIASIS
     Dates: start: 20090321, end: 20111217

REACTIONS (4)
  - FATIGUE [None]
  - WHITE BLOOD CELL COUNT INCREASED [None]
  - MALAISE [None]
  - LEUKAEMIA [None]
